FAERS Safety Report 16117083 (Version 1)
Quarter: 2019Q2

REPORT INFORMATION
  Report Type: Spontaneous
  Country: US (occurrence: US)
  Receive Date: 20190325
  Receipt Date: 20190325
  Transmission Date: 20190711
  Serious: No
  Sender: FDA-Public Use
  Company Number: None

PATIENT
  Age: 50 Year
  Sex: Male
  Weight: 54.45 kg

DRUGS (4)
  1. AIMOVIG [Suspect]
     Active Substance: ERENUMAB-AOOE
     Indication: MIGRAINE
     Dosage: ?          QUANTITY:1 INJECTION(S);OTHER FREQUENCY:ONCE A MONTH;OTHER ROUTE:INECTION?
     Dates: end: 20190222
  2. TOPAMAX [Concomitant]
     Active Substance: TOPIRAMATE
  3. SUMATRIPTAN. [Concomitant]
     Active Substance: SUMATRIPTAN
  4. LYRICA [Concomitant]
     Active Substance: PREGABALIN

REACTIONS (12)
  - Diarrhoea [None]
  - Constipation [None]
  - Hypersomnia [None]
  - Fatigue [None]
  - Paraesthesia [None]
  - Aphasia [None]
  - Migraine [None]
  - Abdominal pain upper [None]
  - Confusional state [None]
  - Bradyphrenia [None]
  - Weight increased [None]
  - Hypoaesthesia [None]

NARRATIVE: CASE EVENT DATE: 20190222
